FAERS Safety Report 25784475 (Version 1)
Quarter: 2025Q3

REPORT INFORMATION
  Report Type: Spontaneous
  Country: CN (occurrence: CN)
  Receive Date: 20250910
  Receipt Date: 20250910
  Transmission Date: 20251020
  Serious: Yes (Other)
  Sender: ACCORD
  Company Number: None

PATIENT
  Age: 72 Year
  Sex: Male
  Weight: 57 kg

DRUGS (4)
  1. TRASTUZUMAB [Suspect]
     Active Substance: TRASTUZUMAB
     Indication: Gastric cancer
     Dosage: 300 MILLIGRAM, QD, IV DRIP, STRENGTH: 150 MG
     Dates: start: 20250730, end: 20250730
  2. CAPECITABINE [Suspect]
     Active Substance: CAPECITABINE
     Indication: Gastric cancer
     Dosage: 1 GRAM, BID
     Route: 048
     Dates: start: 20250730, end: 20250812
  3. SINTILIMAB [Suspect]
     Active Substance: SINTILIMAB
     Indication: Gastric cancer
     Dosage: 200 MILLIGRAM, QD, IV DRIP
     Dates: start: 20250730, end: 20250730
  4. OXALIPLATIN [Suspect]
     Active Substance: OXALIPLATIN
     Indication: Gastric cancer
     Dosage: 130 MILLIGRAM, QD, IV DRIP
     Dates: start: 20250730, end: 20250730

REACTIONS (1)
  - Myelosuppression [Unknown]

NARRATIVE: CASE EVENT DATE: 20250824
